FAERS Safety Report 10063577 (Version 3)
Quarter: 2014Q2

REPORT INFORMATION
  Report Type: Report from Study
  Country: BR (occurrence: BR)
  Receive Date: 20140407
  Receipt Date: 20140607
  Transmission Date: 20141212
  Serious: Yes (Other)
  Sender: FDA-Public Use
  Company Number: PHHY2014BR038392

PATIENT
  Sex: Female
  Weight: 97 kg

DRUGS (8)
  1. DIOVAN HCT [Suspect]
     Indication: HYPERTENSION
     Dosage: 1 DF (160 MG VALS AND 12.5 MG HYDRO), DAILY
     Route: 048
  2. DIOVAN HCT [Suspect]
     Dosage: UNK UKN, UNK
  3. DIOVAN [Suspect]
     Indication: HYPERTENSION
     Dosage: 1 DF (80 MG), DAILY
     Route: 048
  4. DIOVAN [Suspect]
     Dosage: 1 DF (320 MG), DAILY
     Route: 048
  5. EUTIROX [Concomitant]
     Indication: THYROID HORMONE REPLACEMENT THERAPY
     Dosage: UNK UKN, UNK
     Route: 048
  6. MAREVAN [Concomitant]
     Indication: ANTICOAGULANT THERAPY
     Dosage: 1 DF (5 MG), DAILY (ON SAT, TUES, AND THURDAY)
     Route: 048
     Dates: start: 201403
  7. MAREVAN [Concomitant]
     Dosage: 0.5 DF (5 MG), DAILY (ON SUND, MON, WEDN AND FRIDAY)
     Route: 048
  8. SELOZOK [Concomitant]
     Dosage: 150 MG, (1 TABLET OF 100 MG AND 1 TABLET OG 50 MG), DAILY
     Route: 048

REACTIONS (8)
  - Thyroid neoplasm [Recovered/Resolved]
  - Diabetes mellitus [Not Recovered/Not Resolved]
  - Atrial fibrillation [Not Recovered/Not Resolved]
  - Tachycardia [Not Recovered/Not Resolved]
  - Blood pressure increased [Recovering/Resolving]
  - Weight increased [Not Recovered/Not Resolved]
  - Blood pressure decreased [Not Recovered/Not Resolved]
  - Drug ineffective [Recovering/Resolving]
